FAERS Safety Report 7717196-6 (Version None)
Quarter: 2011Q3

REPORT INFORMATION
  Report Type: 
  Country: None (occurrence: None)
  Receive Date: 20110818
  Receipt Date: 20110623
  Transmission Date: 20111222
  Serious: No
  Sender: FDA-Public Use
  Company Number: 1000021755

PATIENT
  Age: 46 Year
  Sex: Female

DRUGS (5)
  1. VIIBRYD [Suspect]
     Indication: MAJOR DEPRESSION
     Dosage: 10 MG (10 MG, 1 IN 1 D), ORAL
     Route: 048
     Dates: start: 20110621
  2. REMERON [Concomitant]
  3. DEPLIN (L-METHYLFOLATE) (L-METHYLFOLATE) [Concomitant]
  4. LITHIUM CARBONATE [Concomitant]
  5. KLONOPIN (CLONAZEPAM) (CLONAZEPAM) [Concomitant]

REACTIONS (1)
  - INSOMNIA [None]
